FAERS Safety Report 6213154-1 (Version None)
Quarter: 2009Q2

REPORT INFORMATION
  Report Type: 
  Country: None (occurrence: None)
  Receive Date: 20090603
  Receipt Date: 20090525
  Transmission Date: 20091009
  Serious: Yes (Other)
  Sender: FDA-Public Use
  Company Number: DK-JNJFOC-20090305447

PATIENT
  Sex: Female
  Weight: 62 kg

DRUGS (4)
  1. REMICADE [Suspect]
     Route: 042
  2. REMICADE [Suspect]
     Indication: JUVENILE ARTHRITIS
     Route: 042
  3. TETANUS VACCINE [Interacting]
     Indication: IMMUNISATION
  4. DICLOFENAC SODIUM [Interacting]
     Indication: DRUG USE FOR UNKNOWN INDICATION

REACTIONS (4)
  - DRUG INTERACTION [None]
  - MIGRAINE [None]
  - NEUROLOGICAL SYMPTOM [None]
  - SENSORY DISTURBANCE [None]
